FAERS Safety Report 7201345-2 (Version None)
Quarter: 2010Q4

REPORT INFORMATION
  Report Type: 
  Country: None (occurrence: None)
  Receive Date: 20101227
  Receipt Date: 20101227
  Transmission Date: 20110411
  Serious: Yes (Other)
  Sender: FDA-Public Use
  Company Number: None

PATIENT
  Age: 74 Year
  Sex: Male
  Weight: 78.2 kg

DRUGS (2)
  1. STANNOUS FLUORIDE BY CYPRESS PHARMACEUTICAL,INC. 1/8 FLOID FLUID ONCE [Suspect]
     Indication: SENSITIVITY OF TEETH
     Dosage: 1/8 FLOID FLUID ONCE TWICE DAILY MOUTH RINSE
     Route: 048
     Dates: start: 20101022, end: 20101201
  2. STANNOUS FLUORIDE 0.63% CONCENTRATE ORAL SINCE [Suspect]
     Dosage: STANNOUS FLUORIDE 0.63% CONCENTRATE ORAL SINCE
     Route: 048

REACTIONS (2)
  - TONGUE DISCOLOURATION [None]
  - TOOTH DISCOLOURATION [None]
